FAERS Safety Report 23660373 (Version 1)
Quarter: 2024Q1

REPORT INFORMATION
  Report Type: Report from Study
  Country: TR (occurrence: TR)
  Receive Date: 20240321
  Receipt Date: 20240321
  Transmission Date: 20240409
  Serious: Yes (Other)
  Sender: FDA-Public Use
  Company Number: TR-ABBVIE-5683399

PATIENT
  Age: 83 Year
  Sex: Male
  Weight: 60 kg

DRUGS (5)
  1. CARBIDOPA\LEVODOPA [Suspect]
     Active Substance: CARBIDOPA\LEVODOPA
     Indication: Parkinson^s disease
     Dosage: MORNING DOSE (ML): 5.50 CONTINUOUS DOSE (ML): 1.30 EXTRA DOSE (ML): 1.00
     Route: 050
     Dates: start: 20240315, end: 20240319
  2. CARBIDOPA\LEVODOPA [Suspect]
     Active Substance: CARBIDOPA\LEVODOPA
     Dosage: MORNING DOSE (ML): 5.50 CONTINUOUS DOSE (ML): 2.00 EXTRA DOSE (ML): 1.00
     Route: 050
     Dates: start: 20240313, end: 20240315
  3. CARBIDOPA\LEVODOPA [Suspect]
     Active Substance: CARBIDOPA\LEVODOPA
     Dosage: MORNING DOSE (ML): 5.00 CONTINUOUS DOSE (ML): 1.10 EXTRA DOSE (ML): 1.00
     Route: 050
     Dates: start: 20240319
  4. AMANTADINE SULFATE [Concomitant]
     Active Substance: AMANTADINE SULFATE
     Indication: Parkinson^s disease
     Dosage: 450 MILLIGRAM, FORM STRENGTH: 100 MILLIGRAM, FREQUENCY TEXT: 3X1.5,
     Route: 048
  5. DOPADEX SR [Concomitant]
     Indication: Parkinson^s disease
     Dosage: 50 MILLIGRAM, FORM STRENGTH: 25 MILLIGRAM, FREQUENCY TEXT: 1X2
     Route: 048

REACTIONS (2)
  - Depressed level of consciousness [Not Recovered/Not Resolved]
  - Speech disorder [Not Recovered/Not Resolved]

NARRATIVE: CASE EVENT DATE: 20240315
